FAERS Safety Report 4411688-3 (Version None)
Quarter: 2004Q3

REPORT INFORMATION
  Report Type: 
  Country: None (occurrence: None)
  Receive Date: 20040729
  Receipt Date: 20040729
  Transmission Date: 20050211
  Serious: Yes (Hospitalization)
  Sender: FDA-Public Use
  Company Number: None

PATIENT
  Age: 73 Year
  Sex: Female
  Weight: 58.2 kg

DRUGS (14)
  1. LEVAQUIN [Suspect]
     Indication: URINARY TRACT INFECTION
     Dosage: 500 MG Q24H INTRAVENOUS
     Route: 042
     Dates: start: 20040722, end: 20040728
  2. SILVADENE [Concomitant]
  3. ACETAMINOPHEN [Concomitant]
  4. ACETYLCYSTEINE [Concomitant]
  5. ALBUTEROL [Concomitant]
  6. ASPIRIN [Concomitant]
  7. DOCUSATE SODIUM [Concomitant]
  8. FAMOTIDINE [Concomitant]
  9. LISINOPRIL [Concomitant]
  10. METOPROLOL TARTRATE [Concomitant]
  11. MORPHINE [Concomitant]
  12. PHENERGAN [Concomitant]
  13. MAGNESIUM IV [Concomitant]
  14. POTASSIUM IV [Concomitant]

REACTIONS (1)
  - ELECTROCARDIOGRAM QT PROLONGED [None]
